FAERS Safety Report 4317240-2 (Version None)
Quarter: 2004Q1

REPORT INFORMATION
  Report Type: 
  Country: None (occurrence: None)
  Receive Date: 20040312
  Receipt Date: 20040303
  Transmission Date: 20041129
  Serious: Yes (Other)
  Sender: FDA-Public Use
  Company Number: 10050382-C595082-0

PATIENT
  Age: 46 Year
  Sex: Female

DRUGS (7)
  1. 2B1321 - 0.9% SODIUM CHLORIDE INJECTION, USP [Suspect]
     Dosage: DOSE:  50ML FREQUENCY:  CONTINUOUS  ROUTE:  INTRAVENOUS
     Route: 042
     Dates: start: 20040303
  2. INTERLINK SOLUTION SET [Concomitant]
  3. TOBRAMAX [Concomitant]
  4. ASPIRIN [Concomitant]
  5. ZOCOR [Concomitant]
  6. ANTIHISTAMINE [Concomitant]
  7. NASALCOURT [Concomitant]

REACTIONS (3)
  - ERYTHEMA [None]
  - PRURITUS [None]
  - URTICARIA [None]
